FAERS Safety Report 10213273 (Version 3)
Quarter: 2014Q2

REPORT INFORMATION
  Report Type: Report from Study
  Country: JP (occurrence: JP)
  Receive Date: 20140603
  Receipt Date: 20140605
  Transmission Date: 20141212
  Serious: Yes (Hospitalization)
  Sender: FDA-Public Use
  Company Number: JP-ROCHE-1177176

PATIENT
  Age: 75 Year
  Sex: Female

DRUGS (18)
  1. OBINUTUZUMAB [Suspect]
     Indication: B-CELL LYMPHOMA
     Dosage: DATE OF TEH LAST DOSE : 04/MAR/2013, VOLUME OF LAST OBINUTUZUMAB : 250ML, DOSE CONCERNTARTION : 4 MG
     Route: 042
     Dates: start: 20121218
  2. OBINUTUZUMAB [Suspect]
     Route: 065
     Dates: start: 20130107
  3. PREDNISOLONE [Suspect]
     Indication: B-CELL LYMPHOMA
     Dosage: LAST DOSE: 100 MG, DATE OF THE LAST DOSE : 08/MAR/2013
     Route: 048
     Dates: start: 20121218
  4. CYCLOPHOSPHAMIDE [Suspect]
     Indication: B-CELL LYMPHOMA
     Dosage: LAST DOSE OF CYCLOPHOSPHAMIDE : 1125 MG, LAST DOSE PRIOR TO THE SAE : 04/MAR/2013
     Route: 042
     Dates: start: 20121219
  5. DOXORUBICIN [Suspect]
     Indication: B-CELL LYMPHOMA
     Dosage: LAST DOSE :75 MG, DATE OF THE LAST DOSE: 04/MAR/2013
     Route: 042
     Dates: start: 20121219
  6. VINCRISTINE [Suspect]
     Indication: B-CELL LYMPHOMA
     Dosage: LAST DOSE : 2 MG, DATE OF THE MOST RECENT DOSE:04/MAR/2013
     Route: 040
     Dates: start: 20121219
  7. DEXCHLORPHENIRAMINE MALEATE [Concomitant]
     Indication: PREMEDICATION
     Route: 065
     Dates: start: 20121218
  8. ALLOPURINOL [Concomitant]
     Indication: TUMOUR LYSIS SYNDROME
     Route: 065
     Dates: start: 20121218, end: 20130204
  9. HEPARINOID [Concomitant]
     Indication: RASH
  10. TEPRENONE [Concomitant]
     Route: 065
     Dates: start: 20121220
  11. MAGNESIUM OXIDE [Concomitant]
     Indication: CONSTIPATION
     Route: 065
     Dates: start: 20121229, end: 20130430
  12. MAGNESIUM OXIDE [Concomitant]
     Route: 065
     Dates: start: 20121222, end: 20121228
  13. HACHIAZULE [Concomitant]
     Indication: STOMATITIS
     Dosage: GARGLE
     Route: 065
     Dates: start: 20130305
  14. SENNOSIDE [Concomitant]
     Indication: CONSTIPATION
     Route: 065
     Dates: start: 20121220, end: 20121220
  15. BAKTAR [Concomitant]
     Indication: PNEUMOCYSTIS JIROVECII PNEUMONIA
     Route: 065
     Dates: start: 20130214
  16. SODIUM PHOSPHATE [Concomitant]
     Indication: HYPOPHOSPHATAEMIA
     Route: 065
     Dates: start: 20130104, end: 20130107
  17. SODIUM PHOSPHATE [Concomitant]
     Route: 065
     Dates: start: 20130114, end: 20130114
  18. SODIUM PHOSPHATE [Concomitant]
     Route: 065
     Dates: start: 20130120, end: 20130120

REACTIONS (1)
  - Febrile neutropenia [Recovered/Resolved]
